FAERS Safety Report 22299349 (Version 1)
Quarter: 2023Q2

REPORT INFORMATION
  Report Type: Spontaneous
  Country: US (occurrence: None)
  Receive Date: 20230508
  Receipt Date: 20230508
  Transmission Date: 20230721
  Serious: Yes (Other)
  Sender: FDA-Public Use
  Company Number: None

PATIENT
  Age: 59 Year
  Sex: Female
  Weight: 96.75 kg

DRUGS (4)
  1. VRAYLAR [Suspect]
     Active Substance: CARIPRAZINE
     Indication: Bipolar disorder
     Dosage: FREQUENCY : DAILY;?
     Route: 048
     Dates: start: 20230323, end: 20230331
  2. Lithium ER [Concomitant]
  3. Qulipta [Concomitant]
  4. DIVALPROEX [Concomitant]

REACTIONS (3)
  - Mania [None]
  - Hallucination, tactile [None]
  - Pain [None]

NARRATIVE: CASE EVENT DATE: 20230331
